FAERS Safety Report 17625520 (Version 1)
Quarter: 2020Q2

REPORT INFORMATION
  Report Type: Spontaneous
  Country: US (occurrence: US)
  Receive Date: 20200404
  Receipt Date: 20200404
  Transmission Date: 20200713
  Serious: No
  Sender: FDA-Public Use
  Company Number: US-SHIRE-US202012381

PATIENT
  Sex: Female
  Weight: 63 kg

DRUGS (2)
  1. DICYCLOMINE CO [Concomitant]
     Indication: ABDOMINAL PAIN UPPER
  2. LIALDA [Suspect]
     Active Substance: MESALAMINE
     Indication: COLITIS ULCERATIVE
     Dosage: 4 DOSAGE FORM, 1X/DAY:QD
     Route: 048

REACTIONS (3)
  - Muscle spasms [Unknown]
  - Stress [Unknown]
  - Inappropriate schedule of product administration [Unknown]
